FAERS Safety Report 6371641-X (Version None)
Quarter: 2009Q3

REPORT INFORMATION
  Report Type: 
  Country: None (occurrence: None)
  Receive Date: 20090923
  Receipt Date: 20080418
  Transmission Date: 20100115
  Serious: No
  Sender: FDA-Public Use
  Company Number: US-ASTRAZENECA-2008UW01953

PATIENT
  Age: 14644 Day
  Sex: Female
  Weight: 68 kg

DRUGS (16)
  1. SEROQUEL [Suspect]
     Indication: AFFECTIVE DISORDER
     Route: 048
     Dates: start: 20031201
  2. SEROQUEL [Suspect]
     Indication: BIPOLAR DISORDER
     Route: 048
     Dates: start: 20031201
  3. SEROQUEL [Suspect]
     Dosage: 200 - 800 MG
     Route: 048
     Dates: start: 20031201
  4. SEROQUEL [Suspect]
     Dosage: 200 - 800 MG
     Route: 048
     Dates: start: 20031201
  5. LEXAPRO [Concomitant]
     Dates: start: 20030801, end: 20070701
  6. LITHIUM [Concomitant]
     Dates: start: 20030301
  7. CELEXA [Concomitant]
  8. ESKALITH CR [Concomitant]
  9. TRILEPTAL [Concomitant]
  10. TOPAMAX [Concomitant]
  11. KLONOPIN [Concomitant]
  12. EFFEXOR [Concomitant]
  13. NEXIUM [Concomitant]
  14. METFORMIN HCL [Concomitant]
  15. PEPCID [Concomitant]
  16. ZANTAC [Concomitant]

REACTIONS (19)
  - ACUTE TONSILLITIS [None]
  - BACK PAIN [None]
  - BLOOD TRIGLYCERIDES INCREASED [None]
  - BORDERLINE PERSONALITY DISORDER [None]
  - BRONCHITIS [None]
  - BRONCHOSPASM [None]
  - CELLULITIS [None]
  - CERVICITIS [None]
  - CHEST PAIN [None]
  - DIABETES MELLITUS [None]
  - EYE IRRITATION [None]
  - GASTROOESOPHAGEAL REFLUX DISEASE [None]
  - GLOSSITIS [None]
  - INJURY [None]
  - LIMB TRAUMATIC AMPUTATION [None]
  - OBESITY [None]
  - POLYSUBSTANCE DEPENDENCE [None]
  - SINOBRONCHITIS [None]
  - UPPER RESPIRATORY TRACT INFECTION [None]
